FAERS Safety Report 9168888 (Version 1)
Quarter: 2013Q1

REPORT INFORMATION
  Report Type: Spontaneous
  Country: BR (occurrence: BR)
  Receive Date: 20130318
  Receipt Date: 20130318
  Transmission Date: 20140127
  Serious: Yes (Other)
  Sender: FDA-Public Use
  Company Number: BR-PFIZER INC-2013085914

PATIENT
  Sex: Male

DRUGS (5)
  1. LYRICA [Suspect]
     Indication: FORMICATION
     Dosage: 75 MG, TWICE A DAY
     Route: 048
     Dates: start: 20130220
  2. CLOPIDOGREL [Concomitant]
     Indication: CARDIAC DISORDER
  3. AAS INFANTIL [Concomitant]
     Indication: CARDIAC DISORDER
  4. GLICLAZIDE [Concomitant]
     Indication: DIABETES MELLITUS
  5. METFORMIN [Concomitant]

REACTIONS (4)
  - Wound [Unknown]
  - Wound haemorrhage [Unknown]
  - Off label use [Not Recovered/Not Resolved]
  - Drug ineffective for unapproved indication [Unknown]
